FAERS Safety Report 5679807-9 (Version None)
Quarter: 2008Q1

REPORT INFORMATION
  Report Type: 
  Country: None (occurrence: None)
  Receive Date: 20080321
  Receipt Date: 20080305
  Transmission Date: 20080703
  Serious: Yes (Other)
  Sender: FDA-Public Use
  Company Number: 2007JP005798

PATIENT
  Age: 26 Year
  Sex: Female
  Weight: 42 kg

DRUGS (7)
  1. PROGRAF [Suspect]
     Indication: SMALL INTESTINE TRANSPLANT
     Dosage: 4 G, BID, ORAL; 4 G, BID, ORAL
     Route: 048
     Dates: start: 20070213
  2. ANTI-IL-2 RECEPTOR ANTIBODY [Concomitant]
  3. MEDROL [Concomitant]
  4. ROHYPTNOL (FLUNITRAZEPAM) GRANULE [Concomitant]
  5. MARZULENE S (LEVOGLUTAMIDE, SODIUM GUALENATE) GRANULE [Concomitant]
  6. TAKEPRON (LANSOPRAZOLE) ORODISPERSIBLE CR TABLET [Concomitant]
  7. RITUXAN (RITUXIMAB) FORMULATION UNKNOWN [Concomitant]

REACTIONS (6)
  - CONDITION AGGRAVATED [None]
  - DEHYDRATION [None]
  - ELECTROLYTE IMBALANCE [None]
  - RENAL IMPAIRMENT [None]
  - SMALL INTESTINE TRANSPLANT [None]
  - TRANSPLANT REJECTION [None]
